FAERS Safety Report 6830595-X (Version None)
Quarter: 2010Q3

REPORT INFORMATION
  Report Type: 
  Country: None (occurrence: None)
  Receive Date: 20100712
  Receipt Date: 20100706
  Transmission Date: 20110219
  Serious: Yes (Death)
  Sender: FDA-Public Use
  Company Number: US-CELGENEUS-163-21880-09081359

PATIENT
  Sex: Male

DRUGS (2)
  1. REVLIMID [Suspect]
     Route: 048
     Dates: start: 20090731, end: 20090801
  2. REVLIMID [Suspect]
     Route: 048
     Dates: start: 20090801, end: 20090101

REACTIONS (1)
  - DISEASE PROGRESSION [None]
